FAERS Safety Report 8730368 (Version 49)
Quarter: 2015Q3

REPORT INFORMATION
  Report Type: Report from Study
  Country: CA (occurrence: CA)
  Receive Date: 20120817
  Receipt Date: 20150701
  Transmission Date: 20151125
  Serious: Yes (Hospitalization, Other)
  Sender: FDA-Public Use
  Company Number: CA-ROCHE-1101113

PATIENT
  Age: 54 Year
  Sex: Male
  Weight: 110 kg

DRUGS (17)
  1. ACTEMRA [Suspect]
     Active Substance: TOCILIZUMAB
     Indication: RHEUMATOID ARTHRITIS
     Route: 042
     Dates: start: 20120424, end: 20150213
  2. ACTEMRA [Suspect]
     Active Substance: TOCILIZUMAB
     Route: 042
     Dates: start: 20140415
  3. TYLENOL WITH CODEINE [Concomitant]
     Active Substance: ACETAMINOPHEN\CODEINE PHOSPHATE
  4. ACTEMRA [Suspect]
     Active Substance: TOCILIZUMAB
     Route: 042
     Dates: start: 20130315
  5. AVELOX [Suspect]
     Active Substance: MOXIFLOXACIN HYDROCHLORIDE
     Dosage: COMPLETED 2 COURSES ON 04/MAR/2014
     Route: 065
  6. PREVACID [Concomitant]
     Active Substance: LANSOPRAZOLE
  7. AVELOX [Suspect]
     Active Substance: MOXIFLOXACIN HYDROCHLORIDE
     Indication: RESPIRATORY TRACT INFECTION
     Route: 048
     Dates: start: 20130103, end: 20131027
  8. ACTEMRA [Suspect]
     Active Substance: TOCILIZUMAB
     Route: 042
     Dates: start: 20120523
  9. ACTEMRA [Suspect]
     Active Substance: TOCILIZUMAB
     Route: 042
     Dates: start: 20130906
  10. ACTEMRA [Suspect]
     Active Substance: TOCILIZUMAB
     Route: 042
     Dates: start: 20130214
  11. ACTEMRA [Suspect]
     Active Substance: TOCILIZUMAB
     Indication: RHEUMATOID ARTHRITIS
     Dosage: ON HOLD
     Route: 058
     Dates: start: 20150313, end: 20150313
  12. BISOPROLOL [Concomitant]
     Active Substance: BISOPROLOL
     Indication: TACHYCARDIA
  13. PREDNISONE. [Suspect]
     Active Substance: PREDNISONE
     Route: 065
  14. PROLIA [Concomitant]
     Active Substance: DENOSUMAB
     Indication: OSTEOPOROSIS
  15. ACTEMRA [Suspect]
     Active Substance: TOCILIZUMAB
     Route: 042
     Dates: start: 20141024
  16. PREDNISONE. [Suspect]
     Active Substance: PREDNISONE
     Indication: PRODUCT USED FOR UNKNOWN INDICATION
     Dosage: 18-20 MG
     Route: 048
  17. ATACAND [Concomitant]
     Active Substance: CANDESARTAN CILEXETIL

REACTIONS (33)
  - Hepatic enzyme increased [Not Recovered/Not Resolved]
  - Peripheral swelling [Recovering/Resolving]
  - Swelling [Not Recovered/Not Resolved]
  - Weight increased [Unknown]
  - Lymphoedema [Not Recovered/Not Resolved]
  - Peripheral swelling [Not Recovered/Not Resolved]
  - Arthralgia [Not Recovered/Not Resolved]
  - Lower respiratory tract infection [Recovered/Resolved]
  - Wheezing [Not Recovered/Not Resolved]
  - Peripheral swelling [Recovering/Resolving]
  - Infusion related reaction [Unknown]
  - Alanine aminotransferase increased [Unknown]
  - Laceration [Not Recovered/Not Resolved]
  - Bronchitis [Not Recovered/Not Resolved]
  - Sinusitis [Recovering/Resolving]
  - Rheumatoid arthritis [Not Recovered/Not Resolved]
  - Lip ulceration [Not Recovered/Not Resolved]
  - Pain in extremity [Not Recovered/Not Resolved]
  - Dyspnoea [Recovering/Resolving]
  - Weight decreased [Unknown]
  - Rash [Not Recovered/Not Resolved]
  - Tongue ulceration [Not Recovered/Not Resolved]
  - Liver function test abnormal [Unknown]
  - Eosinophil count increased [Not Recovered/Not Resolved]
  - Blood cholesterol increased [Not Recovered/Not Resolved]
  - Respiratory tract infection [Not Recovered/Not Resolved]
  - Dysphonia [Not Recovered/Not Resolved]
  - Skin haemorrhage [Not Recovered/Not Resolved]
  - Pneumonia [Recovered/Resolved]
  - Pyrexia [Recovered/Resolved]
  - Sputum discoloured [Recovered/Resolved]
  - Drug ineffective [Unknown]
  - Inflammation [Unknown]

NARRATIVE: CASE EVENT DATE: 201208
